FAERS Safety Report 8700395 (Version 7)
Quarter: 2012Q4

REPORT INFORMATION
  Report Type: 
  Country: US (occurrence: US)
  Receive Date: 20120802
  Receipt Date: 20121015
  Transmission Date: 20130627
  Serious: Yes (Hospitalization, Other)
  Sender: FDA-Public Use
  Company Number: US-GILEAD-2012-0058210

PATIENT
  Age: 2 Year
  Sex: Female

DRUGS (7)
  1. LETAIRIS [Suspect]
     Indication: PULMONARY HYPERTENSION
     Dosage: 5 mg, UNK
     Route: 048
     Dates: start: 20120611
  2. LETAIRIS [Suspect]
     Indication: TRISOMY 21
     Dosage: 2.5 mg, UNK
     Route: 048
     Dates: start: 20120628
  3. LETAIRIS [Suspect]
     Indication: HEART DISEASE CONGENITAL
  4. LETAIRIS [Suspect]
     Indication: SLEEP APNOEA SYNDROME
  5. LETAIRIS [Suspect]
     Indication: PULMONARY VEIN STENOSIS
  6. LETAIRIS [Suspect]
     Indication: UNEVALUABLE EVENT
  7. LETAIRIS [Suspect]
     Indication: UNEVALUABLE EVENT

REACTIONS (6)
  - Intracardiac thrombus [Unknown]
  - Pulmonary oedema [Recovered/Resolved]
  - Oxygen saturation decreased [Recovered/Resolved]
  - Pulmonary vein stenosis [Unknown]
  - Malaise [Unknown]
  - Fluid retention [Recovered/Resolved]
